FAERS Safety Report 18988274 (Version 1)
Quarter: 2021Q1

REPORT INFORMATION
  Report Type: Spontaneous
  Country: DE (occurrence: DE)
  Receive Date: 20210309
  Receipt Date: 20210309
  Transmission Date: 20210420
  Serious: Yes (Hospitalization)
  Sender: FDA-Public Use
  Company Number: NVSC2021DE049756

PATIENT
  Age: 78 Year
  Sex: Male

DRUGS (2)
  1. TARGIN [Concomitant]
     Active Substance: NALOXONE HYDROCHLORIDE\OXYCODONE HYDROCHLORIDE
     Indication: PRODUCT USED FOR UNKNOWN INDICATION
     Dosage: UNK 10MG/5MG
     Route: 065
  2. BISOPROLOL [Suspect]
     Active Substance: BISOPROLOL
     Indication: PRODUCT USED FOR UNKNOWN INDICATION
     Dosage: 5 MG , (1?0?0.5?0)
     Route: 065

REACTIONS (7)
  - Dehydration [Unknown]
  - Condition aggravated [Unknown]
  - General physical health deterioration [Unknown]
  - Sepsis [Unknown]
  - Fatigue [Unknown]
  - Thirst [Unknown]
  - Hypotension [Unknown]
